FAERS Safety Report 15677559 (Version 5)
Quarter: 2025Q3

REPORT INFORMATION
  Report Type: Spontaneous
  Country: EU (occurrence: EU)
  Receive Date: 20181130
  Receipt Date: 20250929
  Transmission Date: 20251020
  Serious: Yes (Death, Other)
  Sender: PURDUE
  Company Number: EU-JNJFOC-20171210354

PATIENT
  Age: 51 Year
  Sex: Male

DRUGS (13)
  1. MORPHINE SULFATE [Suspect]
     Active Substance: MORPHINE SULFATE
     Indication: Suicide attempt
     Route: 065
  2. TRAMADOL HYDROCHLORIDE [Suspect]
     Active Substance: TRAMADOL HYDROCHLORIDE
     Indication: Suicide attempt
     Route: 065
  3. ALCOHOL [Suspect]
     Active Substance: ALCOHOL
     Indication: Product used for unknown indication
     Route: 065
  4. LYRICA [Suspect]
     Active Substance: PREGABALIN
     Indication: Product used for unknown indication
     Route: 065
  5. LYRICA [Suspect]
     Active Substance: PREGABALIN
     Indication: Suicide attempt
     Route: 065
  6. LYRICA [Suspect]
     Active Substance: PREGABALIN
     Indication: Anxiety disorder
     Route: 065
  7. LYRICA [Suspect]
     Active Substance: PREGABALIN
     Indication: Epilepsy
     Route: 065
  8. LYRICA [Suspect]
     Active Substance: PREGABALIN
     Indication: Neuralgia
  9. CODEINE [Suspect]
     Active Substance: CODEINE
     Indication: Suicide attempt
     Route: 065
  10. LYRICA [Concomitant]
     Active Substance: PREGABALIN
     Indication: Epilepsy
     Route: 065
  11. LYRICA [Concomitant]
     Active Substance: PREGABALIN
     Indication: Anxiety disorder
     Route: 065
  12. LYRICA [Concomitant]
     Active Substance: PREGABALIN
     Indication: Neuralgia
     Route: 065
  13. ALCOHOL [Concomitant]
     Active Substance: ALCOHOL
     Indication: Product used for unknown indication
     Route: 065

REACTIONS (4)
  - Overdose [Fatal]
  - Death [Fatal]
  - Toxicity to various agents [Fatal]
  - Completed suicide [Fatal]
